FAERS Safety Report 25244713 (Version 2)
Quarter: 2025Q2

REPORT INFORMATION
  Report Type: Spontaneous
  Country: TW (occurrence: TW)
  Receive Date: 20250428
  Receipt Date: 20250506
  Transmission Date: 20250716
  Serious: Yes (Other)
  Sender: ROCHE
  Company Number: TW-CHUGAI-2025013132

PATIENT
  Age: 39 Year
  Sex: Male
  Weight: 80 kg

DRUGS (1)
  1. HEMLIBRA [Suspect]
     Active Substance: EMICIZUMAB-KXWH
     Indication: Factor VIII deficiency
     Dosage: 240 MILLIGRAM, ONCE/2WEEKS
     Route: 058
     Dates: start: 20240604

REACTIONS (2)
  - Drug resistance [Unknown]
  - Contusion [Unknown]

NARRATIVE: CASE EVENT DATE: 20250416
